FAERS Safety Report 6245186-1 (Version None)
Quarter: 2009Q2

REPORT INFORMATION
  Report Type: 
  Country: None (occurrence: None)
  Receive Date: 20090625
  Receipt Date: 20090615
  Transmission Date: 20091009
  Serious: Yes (Other)
  Sender: FDA-Public Use
  Company Number: PHHY2009GB19607

PATIENT
  Sex: Male

DRUGS (2)
  1. NILOTINIB [Suspect]
     Indication: CHRONIC MYELOID LEUKAEMIA
     Dosage: 400 MG/DAY
     Dates: start: 20090420
  2. ACETAMINOPHEN W/ CODEINE [Concomitant]
     Indication: ARTHRALGIA
     Dosage: 4-8 DF / DAY
     Route: 048

REACTIONS (2)
  - DIPLOPIA [None]
  - VITH NERVE PARALYSIS [None]
